FAERS Safety Report 11771226 (Version 1)
Quarter: 2015Q4

REPORT INFORMATION
  Report Type: Spontaneous
  Country: CH (occurrence: CH)
  Receive Date: 20151124
  Receipt Date: 20151124
  Transmission Date: 20160304
  Serious: Yes (Disabling, Other)
  Sender: FDA-Public Use
  Company Number: CH-PFIZER INC-2015385782

PATIENT
  Age: 66 Year
  Sex: Female
  Weight: 94 kg

DRUGS (16)
  1. JARDIANCE [Concomitant]
     Active Substance: EMPAGLIFLOZIN
     Dosage: 10 MG, 1X/DAY (1-0-0-0)
     Route: 048
  2. PANTOGAR [Concomitant]
     Active Substance: AMINOBENZOIC ACID\CALCIUM PANTOTHENATE\CYSTINE\KERATIN\THIAMINE MONONITRATE
     Dosage: 1 DF, 1X/DAY (1-0-0-0)
     Route: 048
  3. NEURONTIN [Suspect]
     Active Substance: GABAPENTIN
     Dosage: 600 MG (1.5-1.5-2-0)
     Route: 048
  4. TRESIBA [Concomitant]
     Active Substance: INSULIN DEGLUDEC
     Dosage: 16 IU, 1X/DAY (100 IU/ML, 16IU.-0-0-0)
     Route: 058
  5. ACIDUM FOLICUM STREULI [Concomitant]
     Dosage: 5 MG, 1X/DAY (1-0-0-0)
     Route: 048
  6. NORTRILEN [Suspect]
     Active Substance: NORTRIPTYLINE
     Dosage: 10 MG, 1X/DAY (1-0-0-0)
     Route: 048
  7. NEURONTIN [Suspect]
     Active Substance: GABAPENTIN
     Dosage: 600 MG, 2X/DAY
     Route: 048
     Dates: start: 20150730
  8. TRAMUNDIN [Suspect]
     Active Substance: TRAMADOL HYDROCHLORIDE
     Dosage: 150 MG, 1X/DAY (1-0-(1)-0)
     Route: 048
  9. LISITRIL COMP. [Concomitant]
     Dosage: 1 DF (LISINOPRIL 20MG, HYDROCHLOROTHIAZIDE 12.5 MG), 1X/DAY (1-0-0-0)
     Route: 048
  10. BECOZYME [Concomitant]
     Active Substance: VITAMINS
     Dosage: 1 DF, 1X/DAY (1-0-0-0)
     Route: 048
  11. CALCIMAGON D3 [Concomitant]
     Active Substance: CALCIUM\CHOLECALCIFEROL
     Dosage: 1 DF, 1X/DAY (1-0-0-0)
     Route: 048
  12. DAFALGAN [Concomitant]
     Active Substance: ACETAMINOPHEN
     Dosage: 500 MG, AS NEEDED
     Route: 048
  13. METFIN [Concomitant]
     Active Substance: METFORMIN HYDROCHLORIDE
     Dosage: 1000 MG, 2X/DAY (1-0-1-0)
     Route: 048
  14. PRAVASTATIN [Concomitant]
     Active Substance: PRAVASTATIN\PRAVASTATIN SODIUM
     Dosage: 20 MG, 1X/DAY (1-0-0-0)
     Route: 048
  15. COVERAM [Concomitant]
     Active Substance: AMLODIPINE\PERINDOPRIL
     Dosage: 1 DF, (PERINDOPRIL 10 MG, AMLODIPINE 10MG) 1X/DAY (1-0-0-0)
     Route: 048
  16. MALTOFER [Concomitant]
     Active Substance: IRON POLYMALTOSE
     Dosage: 150 MG, 1X/DAY (10MG/ML 1X1 GRADUATED BEAKER)
     Route: 048

REACTIONS (3)
  - Cognitive disorder [Not Recovered/Not Resolved]
  - Glomerular filtration rate decreased [Unknown]
  - Amnesia [Not Recovered/Not Resolved]

NARRATIVE: CASE EVENT DATE: 2015
